FAERS Safety Report 23438965 (Version 1)
Quarter: 2024Q1

REPORT INFORMATION
  Report Type: Spontaneous
  Country: US (occurrence: US)
  Receive Date: 20240124
  Receipt Date: 20240124
  Transmission Date: 20240410
  Serious: No
  Sender: FDA-Public Use
  Company Number: US-BIOGEN-2019BI00697864

PATIENT
  Sex: Female

DRUGS (3)
  1. TECFIDERA [Suspect]
     Active Substance: DIMETHYL FUMARATE
     Indication: Multiple sclerosis
     Route: 050
     Dates: start: 20140911, end: 20180401
  2. TECFIDERA [Suspect]
     Active Substance: DIMETHYL FUMARATE
     Route: 050
     Dates: start: 20190104
  3. TECFIDERA [Suspect]
     Active Substance: DIMETHYL FUMARATE
     Dates: end: 2019

REACTIONS (8)
  - Product dose omission in error [Unknown]
  - Insomnia [Not Recovered/Not Resolved]
  - Chest pain [Recovered/Resolved]
  - Facial pain [Recovered/Resolved]
  - Pain in extremity [Recovered/Resolved]
  - Flushing [Recovered/Resolved with Sequelae]
  - Skin burning sensation [Recovered/Resolved]
  - T-lymphocyte count decreased [Unknown]

NARRATIVE: CASE EVENT DATE: 20190101
